FAERS Safety Report 11505441 (Version 1)
Quarter: 2015Q3

REPORT INFORMATION
  Report Type: Spontaneous
  Country: US (occurrence: US)
  Receive Date: 20150915
  Receipt Date: 20150915
  Transmission Date: 20151125
  Serious: No
  Sender: FDA-Public Use
  Company Number: US-ROCHE-744570

PATIENT
  Sex: Female

DRUGS (3)
  1. PEGASYS [Suspect]
     Active Substance: PEGINTERFERON ALFA-2A
     Dosage: FORM REPORTED AS PRE-FILLED SYRINGE
     Route: 058
  2. PEGASYS [Suspect]
     Active Substance: PEGINTERFERON ALFA-2A
     Indication: HEPATITIS C
     Route: 058
  3. RIBAVIRIN. [Suspect]
     Active Substance: RIBAVIRIN
     Indication: HEPATITIS C
     Dosage: TAKEN IN DIVIDED DOSES
     Route: 048

REACTIONS (8)
  - Respiratory tract infection [Unknown]
  - Haemoptysis [Not Recovered/Not Resolved]
  - Hypersensitivity [Unknown]
  - Viral infection [Unknown]
  - Memory impairment [Unknown]
  - Nasal congestion [Unknown]
  - Bronchitis [Unknown]
  - Asthma [Unknown]
